FAERS Safety Report 8677643 (Version 2)
Quarter: 2013Q4

REPORT INFORMATION
  Report Type: Spontaneous
  Country: US (occurrence: US)
  Receive Date: 20120723
  Receipt Date: 20131031
  Transmission Date: 20140711
  Serious: No
  Sender: FDA-Public Use
  Company Number: US-009507513-2012SP030537

PATIENT
  Sex: 0

DRUGS (4)
  1. VICTRELIS [Suspect]
  2. PEGINTRON [Interacting]
  3. REBETOL [Interacting]
  4. TAMSULOSIN HYDROCHLORIDE [Concomitant]

REACTIONS (1)
  - Drug interaction [Unknown]
